FAERS Safety Report 14480803 (Version 4)
Quarter: 2018Q2

REPORT INFORMATION
  Report Type: Report from Study
  Country: None (occurrence: CO)
  Receive Date: 20180202
  Receipt Date: 20180424
  Transmission Date: 20180711
  Serious: Yes (Hospitalization, Other)
  Sender: FDA-Public Use
  Company Number: CO-ABBVIE-18S-036-2244120-00

PATIENT

DRUGS (1)
  1. VIEKIRA PAK [Suspect]
     Active Substance: DASABUVIR\OMBITASVIR\PARITAPREVIR\RITONAVIR
     Indication: HEPATITIS C
     Route: 048

REACTIONS (7)
  - Hepatic cirrhosis [Recovered/Resolved]
  - Hepatotoxicity [Recovered/Resolved]
  - Hepatic fibrosis [Recovered/Resolved]
  - Soft tissue disorder [Recovered/Resolved]
  - Incontinence [Recovered/Resolved]
  - Muscular weakness [Recovered/Resolved]
  - Hepatic encephalopathy [Recovered/Resolved]

NARRATIVE: CASE EVENT DATE: 20171217
